FAERS Safety Report 22131083 (Version 2)
Quarter: 2023Q2

REPORT INFORMATION
  Report Type: Spontaneous
  Country: JP (occurrence: JP)
  Receive Date: 20230323
  Receipt Date: 20230421
  Transmission Date: 20230721
  Serious: No
  Sender: FDA-Public Use
  Company Number: JP-GSKNCCC-Case-01688790_AE-68416

PATIENT

DRUGS (2)
  1. BOTOX [Suspect]
     Active Substance: ONABOTULINUMTOXINA
     Indication: Blepharospasm
     Dosage: 1.25 UNITS, SINGLE, EVERY 2.5-3 MONTHS
     Dates: start: 201408, end: 201408
  2. BOTOX [Suspect]
     Active Substance: ONABOTULINUMTOXINA
     Dosage: 1.25 UNITS, SINGLE, EVERY 2.5-3 MONTHS
     Dates: start: 201408, end: 201408

REACTIONS (2)
  - Glare [Unknown]
  - Therapeutic response shortened [Unknown]

NARRATIVE: CASE EVENT DATE: 20210201
